FAERS Safety Report 16868709 (Version 1)
Quarter: 2019Q3

REPORT INFORMATION
  Report Type: Spontaneous
  Country: US (occurrence: US)
  Receive Date: 20190930
  Receipt Date: 20190930
  Transmission Date: 20191005
  Serious: Yes (Other)
  Sender: FDA-Public Use
  Company Number: US-ABBVIE-19K-163-2936522-00

PATIENT
  Sex: Female

DRUGS (1)
  1. SYNTHROID [Suspect]
     Active Substance: LEVOTHYROXINE SODIUM
     Indication: PRODUCT USED FOR UNKNOWN INDICATION
     Dosage: LOWEST DOSE
     Route: 048
     Dates: start: 20190916, end: 20190920

REACTIONS (4)
  - Cerebrovascular accident [Unknown]
  - Fear [Unknown]
  - Palpitations [Unknown]
  - Headache [Unknown]

NARRATIVE: CASE EVENT DATE: 20190920
